FAERS Safety Report 7625020-5 (Version None)
Quarter: 2011Q3

REPORT INFORMATION
  Report Type: 
  Country: None (occurrence: None)
  Receive Date: 20110721
  Receipt Date: 20110713
  Transmission Date: 20111222
  Serious: No
  Sender: FDA-Public Use
  Company Number: US-BIOGENIDEC-2011BI004589

PATIENT
  Sex: Female

DRUGS (1)
  1. TYSABRI [Suspect]
     Indication: MULTIPLE SCLEROSIS
     Route: 042
     Dates: start: 20100518

REACTIONS (7)
  - LIGAMENT RUPTURE [None]
  - FALL [None]
  - OEDEMA PERIPHERAL [None]
  - PAIN [None]
  - MENTAL IMPAIRMENT [None]
  - ANXIETY [None]
  - DEPRESSION [None]
